FAERS Safety Report 23085381 (Version 2)
Quarter: 2023Q4

REPORT INFORMATION
  Report Type: Spontaneous
  Country: US (occurrence: US)
  Receive Date: 20231019
  Receipt Date: 20231020
  Transmission Date: 20240110
  Serious: Yes (Other)
  Sender: FDA-Public Use
  Company Number: US-PFIZER INC-202300331347

PATIENT
  Age: 56 Year
  Sex: Male

DRUGS (1)
  1. DEPO-MEDROL [Suspect]
     Active Substance: METHYLPREDNISOLONE ACETATE
     Dosage: UNK
     Route: 008

REACTIONS (6)
  - Incorrect route of product administration [Unknown]
  - Pain [Unknown]
  - Nervous system disorder [Unknown]
  - Limb discomfort [Unknown]
  - Nerve injury [Unknown]
  - Atrophy [Unknown]
